FAERS Safety Report 24319046 (Version 1)
Quarter: 2024Q3

REPORT INFORMATION
  Report Type: Spontaneous
  Country: US (occurrence: US)
  Receive Date: 20240913
  Receipt Date: 20240913
  Transmission Date: 20241017
  Serious: No
  Sender: BLUEPRINT MEDICINES
  Company Number: US-Blueprint Medicines Corporation-4709

PATIENT
  Sex: Male

DRUGS (1)
  1. AYVAKIT [Suspect]
     Active Substance: AVAPRITINIB
     Indication: Systemic mastocytosis
     Route: 065
     Dates: start: 20230614

REACTIONS (8)
  - Haemorrhage [Unknown]
  - Swelling [Unknown]
  - Pruritus [Unknown]
  - Abnormal faeces [Unknown]
  - Bowel movement irregularity [Unknown]
  - Haemorrhoids [Unknown]
  - Nasal congestion [Unknown]
  - Symptom recurrence [Unknown]
